FAERS Safety Report 9432466 (Version 2)
Quarter: 2013Q3

REPORT INFORMATION
  Report Type: Spontaneous
  Country: AU (occurrence: AU)
  Receive Date: 20130731
  Receipt Date: 20130814
  Transmission Date: 20140515
  Serious: Yes (Other)
  Sender: FDA-Public Use
  Company Number: AU-RANBAXY-2013RR-71697

PATIENT
  Sex: Female

DRUGS (3)
  1. MIDAZOLAM [Suspect]
     Indication: AGITATION
     Dosage: 5-15 MG/HOUR
     Route: 042
  2. TAMIFLU [Suspect]
     Indication: H1N1 INFLUENZA
     Dosage: UNK
     Route: 065
  3. MORPHINE [Suspect]
     Indication: SEDATION
     Dosage: 2.5-10 MG/HOUR
     Route: 042

REACTIONS (3)
  - Agitation [Unknown]
  - Exposure during pregnancy [Recovered/Resolved]
  - Premature delivery [Unknown]
